FAERS Safety Report 5311822-7 (Version None)
Quarter: 2007Q2

REPORT INFORMATION
  Report Type: 
  Country: None (occurrence: None)
  Receive Date: 20070430
  Receipt Date: 20060425
  Transmission Date: 20071010
  Serious: No
  Sender: FDA-Public Use
  Company Number: 2006UW04298

PATIENT
  Age: 58 Year
  Sex: Female
  Weight: 77.1 kg

DRUGS (5)
  1. NEXIUM [Suspect]
     Indication: GASTROOESOPHAGEAL REFLUX DISEASE
     Route: 048
     Dates: start: 20040101
  2. VITAMINS [Concomitant]
  3. COQ10 [Concomitant]
  4. FLAXSEED [Concomitant]
  5. BLACK COHOSH [Concomitant]

REACTIONS (3)
  - BLOOD CHOLESTEROL INCREASED [None]
  - SEXUAL DYSFUNCTION [None]
  - THROAT IRRITATION [None]
